FAERS Safety Report 24909728 (Version 1)
Quarter: 2025Q1

REPORT INFORMATION
  Report Type: Spontaneous
  Country: JP (occurrence: JP)
  Receive Date: 20250131
  Receipt Date: 20250131
  Transmission Date: 20250409
  Serious: Yes (Hospitalization)
  Sender: RECORDATI
  Company Number: JP-RECORDATI RARE DISEASE INC.-2025000503

PATIENT

DRUGS (1)
  1. CARBAGLU [Suspect]
     Active Substance: CARGLUMIC ACID
     Indication: Hyperammonaemia
     Dosage: 900 MG, QID
     Route: 065
     Dates: start: 20240501

REACTIONS (1)
  - General physical health deterioration [Recovered/Resolved]

NARRATIVE: CASE EVENT DATE: 20241007
